FAERS Safety Report 5193661-3 (Version None)
Quarter: 2006Q4

REPORT INFORMATION
  Report Type: 
  Country: None (occurrence: None)
  Receive Date: 20061221
  Receipt Date: 20061211
  Transmission Date: 20070319
  Serious: Yes (Hospitalization)
  Sender: FDA-Public Use
  Company Number: VNL_0217_2006

PATIENT
  Age: 75 Year
  Sex: Male
  Weight: 76.6579 kg

DRUGS (14)
  1. APOKYN [Suspect]
     Indication: PARKINSON'S DISEASE
     Dosage: 0.5 ML VARIABLE SC
     Route: 058
     Dates: start: 20050512
  2. MIRAPEX [Suspect]
     Indication: PARKINSON'S DISEASE
     Dosage: 0.5 MG 6XD PO
     Route: 048
     Dates: end: 20060101
  3. MIRAPEX [Suspect]
     Indication: PARKINSON'S DISEASE
     Dosage: 0.5 MG 5XD PO
     Route: 048
     Dates: start: 20060101
  4. SINEMET CR [Concomitant]
  5. SINEMET 100/100 [Concomitant]
  6. TASMAR [Concomitant]
  7. RIFAMPIN [Concomitant]
  8. LEVAQUIN [Concomitant]
  9. KLONOPIN [Concomitant]
  10. TRAZODONE HCL [Concomitant]
  11. AVODART [Concomitant]
  12. CYMBALTA [Concomitant]
  13. KETOCONAZOLE [Concomitant]
  14. NEXIUM [Concomitant]

REACTIONS (7)
  - CONDITION AGGRAVATED [None]
  - DRUG INEFFECTIVE [None]
  - EYE ROLLING [None]
  - FALL [None]
  - HALLUCINATION [None]
  - LOSS OF CONSCIOUSNESS [None]
  - SLEEP WALKING [None]
